FAERS Safety Report 13393351 (Version 1)
Quarter: 2017Q1

REPORT INFORMATION
  Report Type: Spontaneous
  Country: None (occurrence: SE)
  Receive Date: 20170331
  Receipt Date: 20170331
  Transmission Date: 20170429
  Serious: No
  Sender: FDA-Public Use
  Company Number: SE-MERZ NORTH AMERICA, INC.-17MRZ-00111

PATIENT
  Age: 62 Year
  Sex: Male

DRUGS (2)
  1. CARBOCAINE [Suspect]
     Active Substance: MEPIVACAINE HYDROCHLORIDE
     Indication: ANALGESIC THERAPY
     Dosage: 10MG/ML 1ML?1ML
     Dates: start: 20170208, end: 20170208
  2. ASCLERA [Suspect]
     Active Substance: POLIDOCANOL
     Indication: VARICOSE VEIN
     Dosage: 20MG/ML 10ML?10ML
     Route: 042
     Dates: start: 20170208, end: 20170208

REACTIONS (1)
  - Hypoaesthesia oral [Recovered/Resolved]
